FAERS Safety Report 6517324-4 (Version None)
Quarter: 2009Q4

REPORT INFORMATION
  Report Type: 
  Country: None (occurrence: None)
  Receive Date: 20091223
  Receipt Date: 20091215
  Transmission Date: 20100525
  Serious: Yes (Hospitalization)
  Sender: FDA-Public Use
  Company Number: US-BAXTER-2009BH007961

PATIENT
  Age: 70 Year
  Sex: Female

DRUGS (1)
  1. DIANEAL [Suspect]
     Indication: PERITONEAL DIALYSIS
     Route: 033
     Dates: start: 20090301

REACTIONS (8)
  - CELLULITIS [None]
  - GANGRENE [None]
  - GASTROINTESTINAL HAEMORRHAGE [None]
  - HAEMATEMESIS [None]
  - NAUSEA [None]
  - SKIN NECROSIS [None]
  - VASCULAR INSUFFICIENCY [None]
  - VOMITING [None]
